FAERS Safety Report 11704022 (Version 1)
Quarter: 2015Q4

REPORT INFORMATION
  Report Type: Spontaneous
  Country: JP (occurrence: JP)
  Receive Date: 20151106
  Receipt Date: 20151106
  Transmission Date: 20160304
  Serious: Yes (Hospitalization, Other)
  Sender: FDA-Public Use
  Company Number: JP-BRISTOL-MYERS SQUIBB COMPANY-BMS-2015-074608

PATIENT
  Sex: Female

DRUGS (1)
  1. ORENCIA [Suspect]
     Active Substance: ABATACEPT
     Indication: PRODUCT USED FOR UNKNOWN INDICATION
     Dosage: UNK
     Route: 058
     Dates: start: 2013

REACTIONS (12)
  - Aortic aneurysm [Unknown]
  - Weight decreased [Unknown]
  - Hyponatraemia [Unknown]
  - Osteoporosis [Unknown]
  - Cough [Unknown]
  - Zinc deficiency [Unknown]
  - Gastritis erosive [Unknown]
  - Burning sensation [Unknown]
  - Decreased appetite [Unknown]
  - Hypogeusia [Unknown]
  - Pruritus [Unknown]
  - Oropharyngeal pain [Unknown]

NARRATIVE: CASE EVENT DATE: 2013
